FAERS Safety Report 10471917 (Version 2)
Quarter: 2014Q4

REPORT INFORMATION
  Report Type: Spontaneous
  Country: US (occurrence: US)
  Receive Date: 20140924
  Receipt Date: 20141120
  Transmission Date: 20150528
  Serious: No
  Sender: FDA-Public Use
  Company Number: US-009507513-1409USA010149

PATIENT
  Age: 23 Year
  Sex: Female
  Weight: 84.81 kg

DRUGS (2)
  1. IMPLANON [Concomitant]
     Active Substance: ETONOGESTREL
     Dosage: 3 YEARS UP
     Route: 059
     Dates: start: 20110909, end: 20140909
  2. NEXPLANON [Suspect]
     Active Substance: ETONOGESTREL
     Indication: CONTRACEPTION
     Dosage: 1 DF, UNK
     Route: 059
     Dates: start: 20140909, end: 20140923

REACTIONS (4)
  - Pruritus [Recovered/Resolved]
  - Depression [Recovered/Resolved]
  - General symptom [Recovered/Resolved]
  - Pain in extremity [Not Recovered/Not Resolved]

NARRATIVE: CASE EVENT DATE: 201409
